FAERS Safety Report 7810045-7 (Version None)
Quarter: 2011Q4

REPORT INFORMATION
  Report Type: 
  Country: None (occurrence: None)
  Receive Date: 20111012
  Receipt Date: 20110823
  Transmission Date: 20120403
  Serious: No
  Sender: FDA-Public Use
  Company Number: US-GLAXOSMITHKLINE-A0942006A

PATIENT
  Age: 72 Year
  Sex: Male

DRUGS (6)
  1. MULTI-VITAMIN [Concomitant]
  2. VOLTAREN [Concomitant]
  3. TOPROL-XL [Concomitant]
  4. CITRULLINE [Concomitant]
  5. VITAMIN TAB [Concomitant]
  6. JALYN [Suspect]
     Indication: BENIGN PROSTATIC HYPERPLASIA
     Dosage: .5MG PER DAY
     Route: 048
     Dates: start: 20110820, end: 20110822

REACTIONS (2)
  - MUSCULAR WEAKNESS [None]
  - ASTHENIA [None]
